FAERS Safety Report 4951695-5 (Version None)
Quarter: 2006Q1

REPORT INFORMATION
  Report Type: 
  Country: None (occurrence: None)
  Receive Date: 20060317
  Receipt Date: 20060308
  Transmission Date: 20060701
  Serious: Yes (Hospitalization, Other)
  Sender: FDA-Public Use
  Company Number: HQWYE265425NOV03

PATIENT
  Age: 69 Year
  Sex: Female
  Weight: 127.12 kg

DRUGS (10)
  1. MYLOTARG [Suspect]
     Indication: ACUTE MYELOID LEUKAEMIA
     Dosage: 16.5 MG 1X PER 1 DAY INTRAVENOUS
     Route: 042
     Dates: start: 20031110, end: 20031110
  2. ACETAMINOPHEN [Concomitant]
  3. URSODIOL (URSODEOXYCHOLIC ACID) [Concomitant]
  4. PROTONIX [Concomitant]
  5. DIFLUCAN [Concomitant]
  6. ZOVIRAX [Concomitant]
  7. TEQUIN [Concomitant]
  8. PAXIL [Concomitant]
  9. SYNTHROID [Concomitant]
  10. LASIX [Concomitant]

REACTIONS (11)
  - CHILLS [None]
  - COUGH [None]
  - DIARRHOEA [None]
  - FATIGUE [None]
  - HAEMOGLOBIN DECREASED [None]
  - INFUSION RELATED REACTION [None]
  - NAUSEA [None]
  - PLATELET COUNT DECREASED [None]
  - PYREXIA [None]
  - VOMITING [None]
  - WHITE BLOOD CELL COUNT DECREASED [None]
